FAERS Safety Report 6771127-4 (Version None)
Quarter: 2010Q2

REPORT INFORMATION
  Report Type: 
  Country: None (occurrence: None)
  Receive Date: 20100616
  Receipt Date: 20100609
  Transmission Date: 20101027
  Serious: Yes (Death)
  Sender: FDA-Public Use
  Company Number: US-BAYER-200823546GPV

PATIENT

DRUGS (3)
  1. SORAFENIB [Suspect]
     Indication: GASTRIC CANCER
     Dosage: UNIT DOSE: 400 MG
     Route: 048
  2. DOCETAXEL [Suspect]
     Indication: GASTRIC CANCER
     Dosage: DAY 1 IN A 21 DAY-CYCLE
     Route: 042
  3. CISPLATIN [Suspect]
     Indication: GASTRIC CANCER
     Dosage: DAY 1 IN A 21 DAY CYCLE
     Route: 042

REACTIONS (1)
  - SEPSIS [None]
